FAERS Safety Report 10661841 (Version 1)
Quarter: 2014Q4

REPORT INFORMATION
  Report Type: Spontaneous
  Country: US (occurrence: None)
  Receive Date: 20141217
  Receipt Date: 20141217
  Transmission Date: 20150529
  Serious: No
  Sender: FDA-Public Use
  Company Number: None

PATIENT
  Age: 60 Year
  Sex: Male

DRUGS (11)
  1. HYDROMORPHONE [Suspect]
     Active Substance: HYDROMORPHONE
     Indication: SEDATION
     Dosage: 0.1-12MG/HR TITRATE TO RASS, CONTINUOUS, IV
     Route: 042
     Dates: start: 20141001, end: 20141007
  2. AMIODARONE [Concomitant]
     Active Substance: AMIODARONE
  3. INSULIN REGULAR [Concomitant]
     Active Substance: INSULIN NOS
  4. LANSOPRAZOLE. [Concomitant]
     Active Substance: LANSOPRAZOLE
  5. MAGNESIUM SULFATE. [Concomitant]
     Active Substance: MAGNESIUM SULFATE
  6. ACETAMINOPHEN. [Concomitant]
     Active Substance: ACETAMINOPHEN
  7. ASPIRN [Concomitant]
     Active Substance: ASPIRIN
  8. CAFEPIME [Concomitant]
  9. FENTANYL. [Concomitant]
     Active Substance: FENTANYL
  10. HYDRALAZINE [Concomitant]
     Active Substance: HYDRALAZINE HYDROCHLORIDE
  11. METOPROLOL [Concomitant]
     Active Substance: METOPROLOL

REACTIONS (1)
  - Unresponsive to stimuli [None]

NARRATIVE: CASE EVENT DATE: 20141006
